FAERS Safety Report 18122239 (Version 2)
Quarter: 2021Q3

REPORT INFORMATION
  Report Type: Spontaneous
  Country: US (occurrence: US)
  Receive Date: 20200807
  Receipt Date: 20210909
  Transmission Date: 20211014
  Serious: Yes (Hospitalization, Other)
  Sender: FDA-Public Use
  Company Number: US-AUROBINDO-AUR-APL-2020-037840

PATIENT
  Age: 70 Year
  Sex: Female

DRUGS (1)
  1. TADALAFIL. [Suspect]
     Active Substance: TADALAFIL
     Indication: PRODUCT USED FOR UNKNOWN INDICATION
     Dosage: UNK
     Route: 065

REACTIONS (7)
  - Lymphocytosis [Unknown]
  - Protein total increased [Unknown]
  - Stenosis [Unknown]
  - Mediastinal fibrosis [Unknown]
  - Blood lactate dehydrogenase increased [Unknown]
  - Pleural effusion [Recovered/Resolved]
  - Mediastinitis [Unknown]
